FAERS Safety Report 5388972-2 (Version None)
Quarter: 2007Q3

REPORT INFORMATION
  Report Type: 
  Country: None (occurrence: None)
  Receive Date: 20070713
  Receipt Date: 20070713
  Transmission Date: 20080115
  Serious: Yes (Other)
  Sender: FDA-Public Use
  Company Number: None

PATIENT
  Age: 72 Year
  Sex: Female
  Weight: 46.7205 kg

DRUGS (1)
  1. LEVAQUIN [Suspect]
     Indication: DIARRHOEA
     Dosage: 250 MG BID PO
     Route: 048
     Dates: start: 20070702, end: 20070707

REACTIONS (4)
  - ERYTHEMA [None]
  - GAIT DISTURBANCE [None]
  - SWELLING [None]
  - TENDON PAIN [None]
